FAERS Safety Report 7264351-8 (Version None)
Quarter: 2011Q1

REPORT INFORMATION
  Report Type: 
  Country: None (occurrence: None)
  Receive Date: 20110131
  Receipt Date: 20110118
  Transmission Date: 20110831
  Serious: No
  Sender: FDA-Public Use
  Company Number: US-BIOGENIDEC-2011BI003147

PATIENT
  Age: 51 Year
  Sex: Female

DRUGS (3)
  1. TYSABRI [Suspect]
     Route: 042
     Dates: start: 20050222
  2. AVONEX [Concomitant]
     Indication: MULTIPLE SCLEROSIS
     Route: 030
     Dates: start: 19970901, end: 20050224
  3. TYSABRI [Suspect]
     Indication: MULTIPLE SCLEROSIS
     Route: 042
     Dates: start: 20061228

REACTIONS (1)
  - CYSTITIS [None]
